FAERS Safety Report 20392632 (Version 2)
Quarter: 2022Q2

REPORT INFORMATION
  Report Type: Spontaneous
  Country: US (occurrence: US)
  Receive Date: 20220128
  Receipt Date: 20220504
  Transmission Date: 20220721
  Serious: No
  Sender: FDA-Public Use
  Company Number: US-PFIZER INC-2021611863

PATIENT
  Age: 76 Year
  Sex: Female

DRUGS (3)
  1. INLYTA [Suspect]
     Active Substance: AXITINIB
     Dosage: 5 MG
     Dates: start: 20210501
  2. INLYTA [Suspect]
     Active Substance: AXITINIB
     Dosage: MONDAY-FRIDAY / OFF ON WEEKENDS
     Route: 048
     Dates: start: 20210510
  3. INLYTA [Suspect]
     Active Substance: AXITINIB
     Dosage: 5 MG
     Dates: start: 20210525

REACTIONS (6)
  - Off label use [Unknown]
  - Product use issue [Unknown]
  - Rash pruritic [Unknown]
  - Miliaria [Unknown]
  - Diarrhoea [Unknown]
  - Sunburn [Unknown]
